FAERS Safety Report 5924675-0 (Version None)
Quarter: 2008Q4

REPORT INFORMATION
  Report Type: 
  Country: None (occurrence: None)
  Receive Date: 20081020
  Receipt Date: 20081014
  Transmission Date: 20090506
  Serious: Yes (Hospitalization)
  Sender: FDA-Public Use
  Company Number: JP-MERCK-0809USA02131

PATIENT
  Age: 81 Year
  Sex: Male
  Weight: 59 kg

DRUGS (5)
  1. HYZAAR [Suspect]
     Indication: HYPERTENSION
     Route: 048
     Dates: start: 20080821, end: 20080909
  2. ADALAT [Concomitant]
     Indication: HYPERTENSION
     Route: 048
     Dates: end: 20080921
  3. OLMETEC [Concomitant]
     Indication: HYPERTENSION
     Route: 048
  4. [THERAPY UNSPECIFIED] [Concomitant]
     Route: 048
  5. EURODIN [Concomitant]
     Indication: INSOMNIA
     Route: 048

REACTIONS (3)
  - ANOREXIA [None]
  - HYPONATRAEMIA [None]
  - REFLUX OESOPHAGITIS [None]
